FAERS Safety Report 7811610-3 (Version None)
Quarter: 2011Q4

REPORT INFORMATION
  Report Type: 
  Country: None (occurrence: None)
  Receive Date: 20111013
  Receipt Date: 20110705
  Transmission Date: 20120403
  Serious: No
  Sender: FDA-Public Use
  Company Number: US-BAUSCH-2011BL004347

PATIENT
  Age: 78 Year
  Sex: Female

DRUGS (3)
  1. ZIRGAN [Suspect]
     Indication: HERPES ZOSTER OPHTHALMIC
     Route: 047
     Dates: start: 20110628, end: 20110101
  2. PREDNISOLONE [Concomitant]
  3. VIROPTIC [Concomitant]

REACTIONS (1)
  - PHOTOPHOBIA [None]
